FAERS Safety Report 4475393-X (Version None)
Quarter: 2004Q4

REPORT INFORMATION
  Report Type: 
  Country: None (occurrence: None)
  Receive Date: 20041015
  Receipt Date: 20041002
  Transmission Date: 20050328
  Serious: Yes (Hospitalization)
  Sender: FDA-Public Use
  Company Number: PK-ABBOTT-04P-124-0277089-00

PATIENT
  Age: 30 Year
  Sex: Female

DRUGS (1)
  1. MERIDIA [Suspect]
     Indication: OBESITY
     Route: 048
     Dates: start: 20040531, end: 20040601

REACTIONS (4)
  - DIARRHOEA [None]
  - FOOD INTOLERANCE [None]
  - ILEUS PARALYTIC [None]
  - WEIGHT DECREASED [None]
